FAERS Safety Report 10601528 (Version 1)
Quarter: 2014Q4

REPORT INFORMATION
  Report Type: Spontaneous
  Country: US (occurrence: US)
  Receive Date: 20141124
  Receipt Date: 20141124
  Transmission Date: 20150529
  Serious: No
  Sender: FDA-Public Use
  Company Number: US-BAYER-2014-173365

PATIENT
  Age: 30 Year
  Sex: Female

DRUGS (1)
  1. EOVIST [Suspect]
     Active Substance: GADOXETATE DISODIUM
     Indication: LIVER SCAN
     Dosage: UNK UNK, ONCE
     Route: 042
     Dates: start: 20141118, end: 20141118

REACTIONS (1)
  - Urticaria [None]

NARRATIVE: CASE EVENT DATE: 20141118
